FAERS Safety Report 6773580-9 (Version None)
Quarter: 2010Q2

REPORT INFORMATION
  Report Type: 
  Country: None (occurrence: None)
  Receive Date: 20100614
  Receipt Date: 20100609
  Transmission Date: 20101027
  Serious: Yes (Death)
  Sender: FDA-Public Use
  Company Number: 2010SP008256

PATIENT
  Age: 73 Year
  Sex: Male
  Weight: 49 kg

DRUGS (9)
  1. REMERON [Suspect]
     Indication: DEPRESSION
     Dosage: 15 MG;QD;PO, 30 MG;QD;PO, 15 MG;QD;PO, 15 MG;QD;PO
     Route: 048
     Dates: start: 20091210, end: 20100113
  2. REMERON [Suspect]
     Indication: DEPRESSION
     Dosage: 15 MG;QD;PO, 30 MG;QD;PO, 15 MG;QD;PO, 15 MG;QD;PO
     Route: 048
     Dates: start: 20100114, end: 20100223
  3. REMERON [Suspect]
     Indication: DEPRESSION
     Dosage: 15 MG;QD;PO, 30 MG;QD;PO, 15 MG;QD;PO, 15 MG;QD;PO
     Route: 048
     Dates: start: 20100224, end: 20100301
  4. REMERON [Suspect]
     Indication: DEPRESSION
     Dosage: 15 MG;QD;PO, 30 MG;QD;PO, 15 MG;QD;PO, 15 MG;QD;PO
     Route: 048
     Dates: start: 20100312, end: 20100402
  5. DEPAS (CON.) [Concomitant]
  6. MAGMITT (CON.) [Concomitant]
  7. LOXONIN (CON.) [Concomitant]
  8. ATINES (CON.) [Concomitant]
  9. HALCION (CON.) [Concomitant]

REACTIONS (9)
  - ASPHYXIA [None]
  - COMPLETED SUICIDE [None]
  - CONDITION AGGRAVATED [None]
  - DEPRESSION [None]
  - DIZZINESS [None]
  - DYSGEUSIA [None]
  - MASKED FACIES [None]
  - RESTLESSNESS [None]
  - THIRST [None]
